FAERS Safety Report 7933864-5 (Version None)
Quarter: 2011Q4

REPORT INFORMATION
  Report Type: 
  Country: None (occurrence: None)
  Receive Date: 20111122
  Receipt Date: 20111114
  Transmission Date: 20120403
  Serious: Yes (Hospitalization, Other)
  Sender: FDA-Public Use
  Company Number: US-BAYER-2011-040576

PATIENT
  Age: 26 Year
  Sex: Female
  Weight: 82 kg

DRUGS (6)
  1. YASMIN [Suspect]
     Indication: CONTRACEPTION
     Dosage: UNK
     Dates: start: 20061101, end: 20080701
  2. DROSPIRENONE AND ETHINYL ESTRADIOL [Suspect]
     Indication: CONTRACEPTION
     Dosage: UNK
     Dates: start: 20080701, end: 20090501
  3. NAPROXEN (ALEVE) [Concomitant]
     Indication: HEADACHE
     Dosage: 400 MG, PRN
  4. IBUPROFEN (ADVIL) [Concomitant]
     Indication: HEADACHE
     Dosage: 400 MG, UNK
     Route: 048
  5. LEXAPRO [Concomitant]
     Dosage: 10 MG, UNK
     Route: 048
  6. PHENTERMINE [Concomitant]
     Dosage: UNK
     Dates: start: 20070203, end: 20070713

REACTIONS (5)
  - GASTRIC DISORDER [None]
  - GALLBLADDER INJURY [None]
  - CHOLECYSTITIS CHRONIC [None]
  - CHOLELITHIASIS [None]
  - PAIN [None]
